FAERS Safety Report 19154172 (Version 2)
Quarter: 2021Q2

REPORT INFORMATION
  Report Type: Spontaneous
  Country: BR (occurrence: BR)
  Receive Date: 20210419
  Receipt Date: 20210519
  Transmission Date: 20210717
  Serious: Yes (Other)
  Sender: FDA-Public Use
  Company Number: BR-TAKEDA-2021TUS023987

PATIENT
  Age: 26 Year
  Sex: Female
  Weight: 73 kg

DRUGS (7)
  1. MESALAZINE [Suspect]
     Active Substance: MESALAMINE
     Indication: COLITIS ULCERATIVE
     Dosage: 4.8 GRAM, QD
     Route: 065
  2. VEDOLIZUMAB [Suspect]
     Active Substance: VEDOLIZUMAB
     Indication: COLITIS ULCERATIVE
     Dosage: 300 MILLIGRAM
     Route: 058
  3. MESALAZINE [Suspect]
     Active Substance: MESALAMINE
     Dosage: 4.8 MILLIGRAM,QD
     Route: 065
  4. VEDOLIZUMAB [Suspect]
     Active Substance: VEDOLIZUMAB
     Dosage: 300 MILLIGRAM, Q8WEEKS
     Route: 065
  5. MESALAZINE [Suspect]
     Active Substance: MESALAMINE
     Dosage: 1 GRAM, QD
     Route: 065
  6. MESALAZINE [Suspect]
     Active Substance: MESALAMINE
     Dosage: 1 GRAM,QD
     Route: 065
  7. CORTICOIDEX [Concomitant]
     Active Substance: DEXAMETHASONE SODIUM PHOSPHATE

REACTIONS (12)
  - Weight decreased [Unknown]
  - Drug ineffective [Unknown]
  - Oedema peripheral [Recovered/Resolved]
  - Diarrhoea haemorrhagic [Unknown]
  - Rectal tenesmus [Unknown]
  - Nodule [Recovered/Resolved]
  - COVID-19 [Recovered/Resolved]
  - Influenza [Unknown]
  - Skin mass [Recovered/Resolved]
  - Epigastric discomfort [Unknown]
  - Hyperaemia [Unknown]
  - Erythema nodosum [Recovered/Resolved]

NARRATIVE: CASE EVENT DATE: 202009
